FAERS Safety Report 10026450 (Version 1)
Quarter: 2014Q1

REPORT INFORMATION
  Report Type: Spontaneous
  Country: DE (occurrence: US)
  Receive Date: 20140321
  Receipt Date: 20140321
  Transmission Date: 20141002
  Serious: No
  Sender: FDA-Public Use
  Company Number: DE-009507513-1403USA007542

PATIENT
  Age: 65 Year
  Sex: Female

DRUGS (1)
  1. FOSAMAX 10MG [Suspect]
     Dosage: UNK
     Route: 048
     Dates: start: 2008

REACTIONS (1)
  - Nausea [Unknown]
